FAERS Safety Report 9505232 (Version 1)
Quarter: 2013Q1

REPORT INFORMATION
  Report Type: Spontaneous
  Country: US (occurrence: None)
  Receive Date: 20130220
  Receipt Date: 20130220
  Transmission Date: 20140127
  Serious: No
  Sender: FDA-Public Use
  Company Number: 1000040920

PATIENT
  Age: 56 Year
  Sex: Male

DRUGS (7)
  1. VIIBRYD (VILAZODONE HYDROCHLORIDE) (TABLETS) [Suspect]
     Indication: NIGHTMARE
     Dosage: 20MG (20 MG, 1 IN 1 D)
     Dates: start: 201102
  2. JANUVIA (SITAGLIPTIN PHOSPHATE) (SITAGLIPTIN PHOSPHATE) [Concomitant]
  3. AMARYL (GLIMEPIRIDE) (GLIMEPIRIDE) [Concomitant]
  4. LEVEMIR (INSULIN DETEMIR) (INSULIN DETEMIR) [Concomitant]
  5. LISINOPRILL/HCTZ (ZESTORETIC) (ZESTORETIC) [Concomitant]
  6. METOPROLOL (METOPROLOL) (METOPROLOL) [Concomitant]
  7. LASIX (FUROSEMIDE) (FUROSEMIDE) [Concomitant]

REACTIONS (1)
  - Dyspepsia [None]
